FAERS Safety Report 6803274-2 (Version None)
Quarter: 2010Q2

REPORT INFORMATION
  Report Type: 
  Country: None (occurrence: None)
  Receive Date: 20100628
  Receipt Date: 20090928
  Transmission Date: 20101027
  Serious: No
  Sender: FDA-Public Use
  Company Number: US-ASTRAZENECA-2009SE16193

PATIENT
  Age: 7939 Day
  Sex: Female
  Weight: 52.2 kg

DRUGS (1)
  1. ZOLADEX [Suspect]
     Indication: ENDOMETRIOSIS
     Route: 058
     Dates: start: 20090907

REACTIONS (6)
  - ABDOMINAL PAIN [None]
  - ARTHRALGIA [None]
  - HOT FLUSH [None]
  - INFLUENZA LIKE ILLNESS [None]
  - INSOMNIA [None]
  - NIGHT SWEATS [None]
